FAERS Safety Report 11392690 (Version 1)
Quarter: 2015Q3

REPORT INFORMATION
  Report Type: Spontaneous
  Country: NL (occurrence: NL)
  Receive Date: 20150818
  Receipt Date: 20150818
  Transmission Date: 20151125
  Serious: Yes (Hospitalization, Other)
  Sender: FDA-Public Use
  Company Number: PHHY2015NL097456

PATIENT
  Age: 30 Year
  Sex: Female

DRUGS (1)
  1. HEPARIN [Suspect]
     Active Substance: HEPARIN SODIUM
     Indication: EBSTEIN^S ANOMALY
     Route: 065

REACTIONS (4)
  - Premature delivery [Unknown]
  - Epistaxis [Unknown]
  - Thrombosis [Unknown]
  - Maternal exposure during pregnancy [Unknown]
